FAERS Safety Report 19697025 (Version 1)
Quarter: 2021Q3

REPORT INFORMATION
  Report Type: Spontaneous
  Country: US (occurrence: US)
  Receive Date: 20210813
  Receipt Date: 20210813
  Transmission Date: 20211014
  Serious: Yes (Hospitalization)
  Sender: FDA-Public Use
  Company Number: None

PATIENT
  Age: 76 Year
  Sex: Male
  Weight: 91.6 kg

DRUGS (1)
  1. CEFTRIAXONE. [Suspect]
     Active Substance: CEFTRIAXONE
     Indication: OSTEOMYELITIS
     Dates: start: 20210620, end: 20210804

REACTIONS (8)
  - Pyrexia [None]
  - Acute kidney injury [None]
  - Hypotension [None]
  - Cardiac failure congestive [None]
  - Tachycardia [None]
  - Dermatitis exfoliative generalised [None]
  - Drug reaction with eosinophilia and systemic symptoms [None]
  - Lymphadenopathy [None]

NARRATIVE: CASE EVENT DATE: 20210805
